FAERS Safety Report 7086425-7 (Version None)
Quarter: 2010Q4

REPORT INFORMATION
  Report Type: 
  Country: None (occurrence: None)
  Receive Date: 20101028
  Receipt Date: 20101011
  Transmission Date: 20110411
  Serious: Yes (Other)
  Sender: FDA-Public Use
  Company Number: 011444

PATIENT
  Age: 32 Year
  Sex: Male

DRUGS (5)
  1. MACUGEN [Suspect]
     Dosage: INTRAOCULAR
     Route: 031
     Dates: start: 20100922
  2. COSOPT [Concomitant]
  3. ALPHAGAN [Concomitant]
  4. XALATAN [Concomitant]
  5. FLOXAL EYEDROPS (BENZALKONIUM CHLORIDE, OFLOXACIN) [Concomitant]

REACTIONS (4)
  - BLEPHARITIS [None]
  - EYELID MARGIN CRUSTING [None]
  - EYELID OEDEMA [None]
  - OCULAR HYPERAEMIA [None]
